FAERS Safety Report 6636535-0 (Version None)
Quarter: 2010Q1

REPORT INFORMATION
  Report Type: 
  Country: None (occurrence: None)
  Receive Date: 20100316
  Receipt Date: 20100304
  Transmission Date: 20100710
  Serious: Yes (Hospitalization)
  Sender: FDA-Public Use
  Company Number: PL-SANOFI-AVENTIS-2010SA002142

PATIENT
  Age: 52 Year
  Sex: Male

DRUGS (20)
  1. ACETYLSALICYLIC ACID SRT [Suspect]
     Indication: CORONARY ARTERY STENOSIS
     Route: 065
     Dates: start: 20080101, end: 20090501
  2. ACETYLSALICYLIC ACID SRT [Suspect]
     Indication: ANTIPLATELET THERAPY
     Route: 065
     Dates: start: 20080101, end: 20090501
  3. ACETYLSALICYLIC ACID SRT [Suspect]
     Indication: PERCUTANEOUS CORONARY INTERVENTION
     Route: 065
     Dates: start: 20080101, end: 20090501
  4. ACETYLSALICYLIC ACID SRT [Suspect]
     Indication: CORONARY ARTERIAL STENT INSERTION
     Route: 065
     Dates: start: 20080101, end: 20090501
  5. ACETYLSALICYLIC ACID SRT [Suspect]
     Route: 065
     Dates: start: 20090501
  6. ACETYLSALICYLIC ACID SRT [Suspect]
     Route: 065
     Dates: start: 20090501
  7. ACETYLSALICYLIC ACID SRT [Suspect]
     Route: 065
     Dates: start: 20090501
  8. ACETYLSALICYLIC ACID SRT [Suspect]
     Route: 065
     Dates: start: 20090501
  9. CLOPIDOGREL BISULFATE [Suspect]
     Indication: CORONARY ARTERY STENOSIS
     Route: 048
     Dates: start: 20080101, end: 20090501
  10. CLOPIDOGREL BISULFATE [Suspect]
     Indication: ANTIPLATELET THERAPY
     Route: 048
     Dates: start: 20080101, end: 20090501
  11. CLOPIDOGREL BISULFATE [Suspect]
     Indication: PERCUTANEOUS CORONARY INTERVENTION
     Route: 048
     Dates: start: 20080101, end: 20090501
  12. CLOPIDOGREL BISULFATE [Suspect]
     Indication: CORONARY ARTERIAL STENT INSERTION
     Route: 048
     Dates: start: 20080101, end: 20090501
  13. CLOPIDOGREL BISULFATE [Suspect]
     Route: 048
     Dates: start: 20090501, end: 20090601
  14. CLOPIDOGREL BISULFATE [Suspect]
     Route: 048
     Dates: start: 20090501, end: 20090601
  15. CLOPIDOGREL BISULFATE [Suspect]
     Route: 048
     Dates: start: 20090501, end: 20090601
  16. CLOPIDOGREL BISULFATE [Suspect]
     Route: 048
     Dates: start: 20090501, end: 20090601
  17. CLOPIDOGREL BISULFATE [Suspect]
     Route: 048
     Dates: start: 20090601
  18. CLOPIDOGREL BISULFATE [Suspect]
     Route: 048
     Dates: start: 20090601
  19. CLOPIDOGREL BISULFATE [Suspect]
     Route: 048
     Dates: start: 20090601
  20. CLOPIDOGREL BISULFATE [Suspect]
     Route: 048
     Dates: start: 20090601

REACTIONS (7)
  - ARTERIOSCLEROSIS CORONARY ARTERY [None]
  - CARDIAC FUNCTION DISTURBANCE POSTOPERATIVE [None]
  - DISEASE PROGRESSION [None]
  - IN-STENT CORONARY ARTERY RESTENOSIS [None]
  - MYOCARDIAL ISCHAEMIA [None]
  - NO THERAPEUTIC RESPONSE [None]
  - THROMBOSIS IN DEVICE [None]
